FAERS Safety Report 23831756 (Version 1)
Quarter: 2024Q2

REPORT INFORMATION
  Report Type: Spontaneous
  Country: FR (occurrence: FR)
  Receive Date: 20240508
  Receipt Date: 20240508
  Transmission Date: 20240716
  Serious: Yes (Death, Hospitalization)
  Sender: FDA-Public Use
  Company Number: FR-AMGEN-FRASP2024087399

PATIENT

DRUGS (1)
  1. CARFILZOMIB [Suspect]
     Active Substance: CARFILZOMIB
     Indication: Plasma cell myeloma
     Dosage: UNK
     Route: 065

REACTIONS (24)
  - Death [Fatal]
  - Haemorrhage [Fatal]
  - Sepsis [Fatal]
  - Plasma cell myeloma [Fatal]
  - COVID-19 [Fatal]
  - Plasma cell myeloma refractory [Unknown]
  - Thrombotic microangiopathy [Unknown]
  - Influenza [Unknown]
  - Pneumonia [Unknown]
  - Cytomegalovirus infection reactivation [Unknown]
  - Dengue fever [Unknown]
  - Herpes zoster reactivation [Unknown]
  - Nervous system disorder [Unknown]
  - Confusional state [Unknown]
  - Headache [Unknown]
  - Seizure [Unknown]
  - Coma [Unknown]
  - Cardiac disorder [Unknown]
  - Gastrointestinal disorder [Unknown]
  - Hypertension [Unknown]
  - Chronic kidney disease [Unknown]
  - Therapy partial responder [Unknown]
  - Acute kidney injury [Unknown]
  - Attention deficit hyperactivity disorder [Unknown]
